FAERS Safety Report 25186000 (Version 1)
Quarter: 2025Q2

REPORT INFORMATION
  Report Type: Spontaneous
  Country: GB (occurrence: GB)
  Receive Date: 20250410
  Receipt Date: 20250410
  Transmission Date: 20250716
  Serious: Yes (Hospitalization)
  Sender: ELI LILLY AND CO
  Company Number: GB-ELI_LILLY_AND_COMPANY-GB202504002153

PATIENT
  Sex: Female

DRUGS (2)
  1. MOUNJARO [Suspect]
     Active Substance: TIRZEPATIDE
     Indication: Product used for unknown indication
     Route: 058
     Dates: start: 202503
  2. MOUNJARO [Suspect]
     Active Substance: TIRZEPATIDE
     Route: 058

REACTIONS (5)
  - Dehydration [Unknown]
  - Muscle spasms [Unknown]
  - Pulmonary embolism [Unknown]
  - Renal failure [Unknown]
  - Asthenia [Unknown]
